FAERS Safety Report 7066408-3 (Version None)
Quarter: 2010Q4

REPORT INFORMATION
  Report Type: 
  Country: None (occurrence: None)
  Receive Date: 20101027
  Receipt Date: 20091117
  Transmission Date: 20110411
  Serious: No
  Sender: FDA-Public Use
  Company Number: US-WYE-H12201309

PATIENT
  Sex: Female
  Weight: 52.21 kg

DRUGS (4)
  1. PREMPRO [Suspect]
     Indication: HORMONE THERAPY
     Route: 048
     Dates: start: 20000101
  2. ATENOLOL [Concomitant]
  3. DYAZIDE [Concomitant]
  4. LISINOPRIL [Concomitant]

REACTIONS (1)
  - ALOPECIA [None]
